FAERS Safety Report 11112923 (Version 1)
Quarter: 2015Q2

REPORT INFORMATION
  Report Type: Spontaneous
  Country: CO (occurrence: None)
  Receive Date: 20150512
  Receipt Date: 20150512
  Transmission Date: 20150821
  Serious: Yes (Hospitalization)
  Sender: FDA-Public Use
  Company Number: 2015FE01445

PATIENT
  Age: 43 Year
  Sex: Male

DRUGS (1)
  1. DESMOPRESSIN (DESMOPRESSIN) [Suspect]
     Active Substance: DESMOPRESSIN
     Indication: DIABETES INSIPIDUS
     Dosage: 2 PUFF DAILY
     Route: 045
     Dates: start: 20140207

REACTIONS (8)
  - Vision blurred [None]
  - Tachycardia [None]
  - Product odour abnormal [None]
  - Hypertension [None]
  - Vomiting [None]
  - Hypoaesthesia [None]
  - Headache [None]
  - Product outer packaging issue [None]

NARRATIVE: CASE EVENT DATE: 20150410
